FAERS Safety Report 8954342 (Version 3)
Quarter: 2013Q2

REPORT INFORMATION
  Report Type: Report from Study
  Country: JP (occurrence: JP)
  Receive Date: 20121210
  Receipt Date: 20130403
  Transmission Date: 20140414
  Serious: Yes (Life-Threatening, Hospitalization)
  Sender: FDA-Public Use
  Company Number: JP-AMGEN-JPNCT2012078981

PATIENT
  Age: 90 Year
  Sex: Female

DRUGS (13)
  1. DARBEPOETIN ALFA [Suspect]
     Indication: NEPHROGENIC ANAEMIA
     Dosage: 30 MUG, Q2WK
     Route: 058
     Dates: start: 20110720, end: 20111220
  2. DARBEPOETIN ALFA [Suspect]
     Dosage: 30 MUG, QD
     Route: 058
     Dates: start: 20120110, end: 20120110
  3. DARBEPOETIN ALFA [Suspect]
     Dosage: 40 MUG, QD
     Route: 058
     Dates: start: 20120306, end: 20120306
  4. DARBEPOETIN ALFA [Suspect]
     Dosage: 60 MUG, QD
     Route: 058
     Dates: start: 20120625
  5. DIART [Suspect]
     Dosage: UNK UNK, UNK
     Route: 048
  6. SPIRONOLACTONE [Suspect]
     Dosage: UNK
     Route: 048
  7. ALLORIN [Concomitant]
     Dosage: UNK
     Route: 048
  8. RENIVEZE [Concomitant]
     Dosage: UNK
     Route: 048
  9. BEZATATE [Concomitant]
     Indication: NEPHROSCLEROSIS
     Dosage: UNK
     Route: 048
  10. BENIDIPINE HYDROCHLORIDE [Concomitant]
     Dosage: UNK
     Route: 048
  11. ALOSENN [Concomitant]
     Dosage: UNK
     Route: 048
  12. ASPARA K [Concomitant]
     Dosage: UNK
     Route: 048
  13. ALENDRONATE [Concomitant]
     Dosage: UNK
     Route: 048

REACTIONS (1)
  - Renal failure [Recovering/Resolving]
